FAERS Safety Report 7060188-3 (Version None)
Quarter: 2010Q4

REPORT INFORMATION
  Report Type: 
  Country: None (occurrence: None)
  Receive Date: 20101025
  Receipt Date: 20101015
  Transmission Date: 20110411
  Serious: Yes (Other)
  Sender: FDA-Public Use
  Company Number: B0679748A

PATIENT
  Sex: Male

DRUGS (2)
  1. LAMICTAL [Suspect]
     Indication: PRODUCT USED FOR UNKNOWN INDICATION
     Route: 048
     Dates: start: 20090101
  2. NICOTINE PATCHES [Suspect]
     Dosage: 21MG PER DAY
     Route: 062
     Dates: start: 20100921, end: 20101004

REACTIONS (1)
  - EPILEPSY [None]
